FAERS Safety Report 8486497-9 (Version None)
Quarter: 2012Q3

REPORT INFORMATION
  Report Type: 
  Country: None (occurrence: None)
  Receive Date: 20120703
  Receipt Date: 20120626
  Transmission Date: 20120928
  Serious: No
  Sender: FDA-Public Use
  Company Number: US-JNJFOC-20120603622

PATIENT
  Sex: Female
  Weight: 97 kg

DRUGS (6)
  1. REMICADE [Suspect]
     Indication: RHEUMATOID ARTHRITIS
     Dosage: DOSE REPORTED AS ^Q8^
     Route: 042
     Dates: start: 20080617, end: 20080923
  2. PREVACID [Concomitant]
     Indication: GASTROOESOPHAGEAL REFLUX DISEASE
  3. PREDNISONE [Concomitant]
     Indication: RHEUMATOID ARTHRITIS
  4. ZYRTEC [Concomitant]
     Indication: PREMEDICATION
     Dates: start: 20080923
  5. PAROXETINE [Concomitant]
     Indication: DEPRESSION
  6. ACETAMINOPHEN [Concomitant]
     Indication: PREMEDICATION
     Dates: start: 20080923

REACTIONS (3)
  - VOMITING [None]
  - PYREXIA [None]
  - DIARRHOEA [None]
